FAERS Safety Report 14779117 (Version 1)
Quarter: 2018Q2

REPORT INFORMATION
  Report Type: Spontaneous
  Country: FR (occurrence: FR)
  Receive Date: 20180419
  Receipt Date: 20180419
  Transmission Date: 20180711
  Serious: Yes (Other)
  Sender: FDA-Public Use
  Company Number: FR-MERCK KGAA-2046061

PATIENT
  Age: 54 Year
  Sex: Female

DRUGS (1)
  1. NOVOTHYROX [Suspect]
     Active Substance: LEVOTHYROXINE SODIUM
     Indication: HYPOTHYROIDISM
     Dates: start: 2017

REACTIONS (20)
  - Weight increased [None]
  - Tachycardia [None]
  - Arthralgia [Recovering/Resolving]
  - Mood swings [None]
  - Family stress [None]
  - Hyperthyroidism [Recovering/Resolving]
  - Fatigue [None]
  - Irritability [None]
  - Sleep disorder [Recovering/Resolving]
  - Fear [None]
  - Disturbance in attention [None]
  - Apathy [None]
  - Blood thyroid stimulating hormone decreased [None]
  - Stress [None]
  - Vertigo [None]
  - Headache [Recovering/Resolving]
  - Muscle spasms [None]
  - Loss of personal independence in daily activities [None]
  - Myalgia [Recovering/Resolving]
  - Anti-thyroid antibody positive [None]

NARRATIVE: CASE EVENT DATE: 20170303
